FAERS Safety Report 20324848 (Version 3)
Quarter: 2022Q1

REPORT INFORMATION
  Report Type: Report from Study
  Country: US (occurrence: US)
  Receive Date: 20220111
  Receipt Date: 20220125
  Transmission Date: 20220423
  Serious: Yes (Hospitalization, Other)
  Sender: FDA-Public Use
  Company Number: US-009507513-2201USA000854

PATIENT
  Sex: Female
  Weight: 55.692 kg

DRUGS (30)
  1. PEMBROLIZUMAB [Suspect]
     Active Substance: PEMBROLIZUMAB
     Indication: Malignant melanoma
     Dosage: UNK, EVERY 3 WEEKS
     Route: 042
     Dates: start: 20210319, end: 20211105
  2. LOSARTAN [Concomitant]
     Active Substance: LOSARTAN
  3. METFORMIN [Concomitant]
     Active Substance: METFORMIN HYDROCHLORIDE
  4. ASPIRIN [Concomitant]
     Active Substance: ASPIRIN
  5. B-COMPLEX S [Concomitant]
     Dosage: 1 DOSAGE FORM, QD
     Route: 048
  6. VITAMIN C [Concomitant]
     Active Substance: ASCORBIC ACID
     Dosage: 1 DOSAGE FORM, QD
  7. CETIRIZINE [Concomitant]
     Active Substance: CETIRIZINE HYDROCHLORIDE
     Dosage: 10 MILLIGRAM, QD
     Route: 048
  8. DRONABINOL [Concomitant]
     Active Substance: DRONABINOL
     Dosage: 5 MILLIGRAM, BID
     Route: 048
  9. FERROUS SULFATE [Concomitant]
     Active Substance: FERROUS SULFATE
     Dosage: 325 MILLIGRAM, BID
     Route: 048
  10. HEPARIN [Concomitant]
     Active Substance: HEPARIN SODIUM
  11. INSULIN ASPART [Concomitant]
     Active Substance: INSULIN ASPART
  12. INSULIN GLARGINE [Concomitant]
     Active Substance: INSULIN GLARGINE
  13. METRONIDAZOLE [Concomitant]
     Active Substance: METRONIDAZOLE
     Dosage: 500 MILLIGRAM, TID
     Route: 048
  14. PANTOPRAZOLE [Concomitant]
     Active Substance: PANTOPRAZOLE
     Dosage: 40 MILLIGRAM, TID
     Route: 048
  15. PREDNISONE [Concomitant]
     Active Substance: PREDNISONE
  16. SODIUM CHLORIDE [Concomitant]
     Active Substance: SODIUM CHLORIDE
  17. PROCHLORPERAZINE [Concomitant]
     Active Substance: PROCHLORPERAZINE
  18. POTASSIUM CHLORIDE [Concomitant]
     Active Substance: POTASSIUM CHLORIDE
  19. POTASSIUM BICARBONATE [Concomitant]
     Active Substance: POTASSIUM BICARBONATE
  20. OXYCODONE [Concomitant]
     Active Substance: OXYCODONE
  21. ONDANSETRON [Concomitant]
     Active Substance: ONDANSETRON
  22. MICONAZOLE [Concomitant]
     Active Substance: MICONAZOLE
  23. LOPERAMIDE [Concomitant]
     Active Substance: LOPERAMIDE
  24. GLUCAGON [Concomitant]
     Active Substance: GLUCAGON
  25. FAMOTIDINE [Concomitant]
     Active Substance: FAMOTIDINE
  26. DOCUSATE [Concomitant]
     Active Substance: DOCUSATE
  27. DEXTROSE [Concomitant]
     Active Substance: DEXTROSE
  28. CEPACOL PLUS ORIGINAL LOZENGE [Concomitant]
  29. ALBUTEROL SULFATE [Concomitant]
     Active Substance: ALBUTEROL SULFATE
  30. ACETAMINOPHEN [Concomitant]
     Active Substance: ACETAMINOPHEN

REACTIONS (36)
  - Immune-mediated enterocolitis [Unknown]
  - Urinary tract infection [Unknown]
  - Diabetes mellitus inadequate control [Not Recovered/Not Resolved]
  - Nausea [Not Recovered/Not Resolved]
  - Polyarthritis [Unknown]
  - Feeding disorder [Not Recovered/Not Resolved]
  - Dehydration [Not Recovered/Not Resolved]
  - Vomiting [Recovering/Resolving]
  - Hypokalaemia [Unknown]
  - Leukocytosis [Unknown]
  - Nephrolithiasis [Unknown]
  - Arthralgia [Not Recovered/Not Resolved]
  - Diarrhoea [Not Recovered/Not Resolved]
  - Muscle atrophy [Not Recovered/Not Resolved]
  - Decreased appetite [Not Recovered/Not Resolved]
  - Inflammation [Not Recovered/Not Resolved]
  - Cough [Unknown]
  - Oedema peripheral [Unknown]
  - Retching [Unknown]
  - Asthenia [Unknown]
  - Iron deficiency anaemia [Unknown]
  - Rash [Unknown]
  - Insomnia [Unknown]
  - Generalised anxiety disorder [Not Recovered/Not Resolved]
  - Depression [Not Recovered/Not Resolved]
  - Pain [Not Recovered/Not Resolved]
  - Gait disturbance [Not Recovered/Not Resolved]
  - Back pain [Unknown]
  - Headache [Unknown]
  - Gastrointestinal inflammation [Unknown]
  - Pain in extremity [Unknown]
  - Muscular weakness [Unknown]
  - Taste disorder [Unknown]
  - Obesity [Unknown]
  - Hepatic steatosis [Unknown]
  - Hypovolaemia [Unknown]

NARRATIVE: CASE EVENT DATE: 20210101
